FAERS Safety Report 17551978 (Version 3)
Quarter: 2020Q2

REPORT INFORMATION
  Report Type: Report from Study
  Country: US (occurrence: US)
  Receive Date: 20200317
  Receipt Date: 20200414
  Transmission Date: 20200713
  Serious: Yes (Death, Hospitalization)
  Sender: FDA-Public Use
  Company Number: US-ACTELION-A-NJ2019-186188

PATIENT
  Age: 77 Year
  Sex: Male
  Weight: 68.03 kg

DRUGS (3)
  1. SILDENAFIL CITRATE. [Concomitant]
     Active Substance: SILDENAFIL CITRATE
  2. WARFARIN [Concomitant]
     Active Substance: WARFARIN
  3. OPSUMIT [Suspect]
     Active Substance: MACITENTAN
     Indication: PULMONARY HYPERTENSION
     Dosage: 10 MG, QD
     Route: 048

REACTIONS (8)
  - Cardiac failure [Unknown]
  - Renal failure [Unknown]
  - Productive cough [Unknown]
  - Respiratory failure [Unknown]
  - Hypophagia [Unknown]
  - Death [Fatal]
  - Asthenia [Unknown]
  - Peripheral swelling [Unknown]

NARRATIVE: CASE EVENT DATE: 20200320
